FAERS Safety Report 23312393 (Version 20)
Quarter: 2025Q3

REPORT INFORMATION
  Report Type: Report from Study
  Country: US (occurrence: US)
  Receive Date: 20231219
  Receipt Date: 20250929
  Transmission Date: 20251020
  Serious: Yes (Other)
  Sender: TAKEDA
  Company Number: US-TAKEDA-2023TUS118310

PATIENT
  Age: 61 Year
  Sex: Female
  Weight: 61 kg

DRUGS (30)
  1. HUMAN IMMUNOGLOBULIN G [Suspect]
     Active Substance: HUMAN IMMUNOGLOBULIN G
     Indication: Immunodeficiency common variable
     Dosage: 25 GRAM, Q4WEEKS
  2. HUMAN IMMUNOGLOBULIN G [Suspect]
     Active Substance: HUMAN IMMUNOGLOBULIN G
     Dosage: 25 GRAM, Q6WEEKS
  3. EPINEPHRINE [Concomitant]
     Active Substance: EPINEPHRINE
  4. ACETAMINOPHEN [Concomitant]
     Active Substance: ACETAMINOPHEN
  5. OMEPRAZOLE [Concomitant]
     Active Substance: OMEPRAZOLE
  6. DEXAMETHASONE [Concomitant]
     Active Substance: DEXAMETHASONE
  7. CELEBREX [Concomitant]
     Active Substance: CELECOXIB
  8. SODIUM CHLORIDE [Concomitant]
     Active Substance: SODIUM CHLORIDE
  9. ADVIL [Concomitant]
     Active Substance: IBUPROFEN
  10. POTASSIUM CHLORIDE [Concomitant]
     Active Substance: POTASSIUM CHLORIDE
  11. ESTRADIOL [Concomitant]
     Active Substance: ESTRADIOL
  12. LIDOCAINE [Concomitant]
     Active Substance: LIDOCAINE
  13. Omega [Concomitant]
  14. CALCIUM\CHOLECALCIFEROL [Concomitant]
     Active Substance: CALCIUM\CHOLECALCIFEROL
  15. BUMETANIDE [Concomitant]
     Active Substance: BUMETANIDE
  16. LATANOPROST [Concomitant]
     Active Substance: LATANOPROST
  17. DIPHENHYDRAMINE HYDROCHLORIDE [Concomitant]
     Active Substance: DIPHENHYDRAMINE HYDROCHLORIDE
  18. VITAMIN D3 [Concomitant]
     Active Substance: CHOLECALCIFEROL
  19. GABAPENTIN [Concomitant]
     Active Substance: GABAPENTIN
  20. Aller Flo [Concomitant]
  21. WIXELA INHUB [Concomitant]
     Active Substance: FLUTICASONE PROPIONATE\SALMETEROL XINAFOATE
  22. AZITHROMYCIN [Concomitant]
     Active Substance: AZITHROMYCIN
  23. DORZOLAMIDE HYDROCHLORIDE [Concomitant]
     Active Substance: DORZOLAMIDE HYDROCHLORIDE
  24. ALBUTEROL SULFATE [Concomitant]
     Active Substance: ALBUTEROL SULFATE
  25. PROVENTIL HFA [Concomitant]
     Active Substance: ALBUTEROL SULFATE
  26. FLUTICASONE PROPIONATE [Concomitant]
     Active Substance: FLUTICASONE PROPIONATE
  27. PROAIR DIGIHALER [Concomitant]
     Active Substance: ALBUTEROL SULFATE
  28. RABEPRAZOLE SODIUM [Concomitant]
     Active Substance: RABEPRAZOLE SODIUM
  29. LIDOCAINE [Concomitant]
     Active Substance: LIDOCAINE
  30. Calcium plus D3 + minerals [Concomitant]

REACTIONS (20)
  - Tendon rupture [Unknown]
  - Suicide threat [Unknown]
  - Neuralgia [Unknown]
  - Incorrect drug administration rate [Unknown]
  - Emotional distress [Unknown]
  - Stress [Unknown]
  - Product dose omission issue [Unknown]
  - Inappropriate schedule of product administration [Recovered/Resolved]
  - Respiratory tract infection [Unknown]
  - Infusion related reaction [Unknown]
  - Product use issue [Unknown]
  - Anxiety [Unknown]
  - Pain [Recovered/Resolved]
  - Pain in extremity [Unknown]
  - Chest discomfort [Unknown]
  - Back pain [Unknown]
  - Nausea [Unknown]
  - Headache [Recovered/Resolved]
  - Fatigue [Recovered/Resolved]
  - Dizziness [Recovered/Resolved]
